FAERS Safety Report 13874642 (Version 1)
Quarter: 2017Q3

REPORT INFORMATION
  Report Type: Spontaneous
  Country: US (occurrence: US)
  Receive Date: 20170816
  Receipt Date: 20170816
  Transmission Date: 20171127
  Serious: No
  Sender: FDA-Public Use
  Company Number: US-ROCHE-1230786

PATIENT
  Sex: Female

DRUGS (1)
  1. LUCENTIS [Suspect]
     Active Substance: RANIBIZUMAB
     Indication: NEOVASCULAR AGE-RELATED MACULAR DEGENERATION
     Route: 065

REACTIONS (6)
  - Haemorrhage [Unknown]
  - Pain [Unknown]
  - Blister [Unknown]
  - Inflammation [Unknown]
  - Eye disorder [Unknown]
  - Salivary gland operation [Unknown]
